FAERS Safety Report 6260050-X (Version None)
Quarter: 2009Q3

REPORT INFORMATION
  Report Type: 
  Country: None (occurrence: None)
  Receive Date: 20090708
  Receipt Date: 20090605
  Transmission Date: 20100115
  Serious: No
  Sender: FDA-Public Use
  Company Number: US-BAYER-200919809NA

PATIENT
  Age: 32 Year
  Sex: Female

DRUGS (4)
  1. MIRENA [Suspect]
     Indication: CONTRACEPTION
     Route: 015
     Dates: start: 20061129
  2. DEXEDRINE [Concomitant]
  3. SPIRONOLACTONE [Concomitant]
  4. LORATADINE [Concomitant]

REACTIONS (3)
  - AMENORRHOEA [None]
  - PROCEDURAL PAIN [None]
  - SKIN LESION [None]
